FAERS Safety Report 8297404-6 (Version None)
Quarter: 2012Q2

REPORT INFORMATION
  Report Type: 
  Country: None (occurrence: None)
  Receive Date: 20120419
  Receipt Date: 20120410
  Transmission Date: 20120825
  Serious: Yes (Other)
  Sender: FDA-Public Use
  Company Number: AR-JNJFOC-20120105155

PATIENT
  Age: 22 Year
  Sex: Male

DRUGS (2)
  1. INFLIXIMAB, RECOMBINANT [Suspect]
     Indication: RHEUMATOID ARTHRITIS
     Route: 042
     Dates: start: 20120101
  2. INFLIXIMAB, RECOMBINANT [Suspect]
     Route: 042

REACTIONS (6)
  - BRONCHOSPASM [None]
  - PYREXIA [None]
  - THROAT TIGHTNESS [None]
  - INFUSION RELATED REACTION [None]
  - DYSPNOEA [None]
  - RESPIRATORY DISTRESS [None]
